FAERS Safety Report 18066858 (Version 2)
Quarter: 2020Q3

REPORT INFORMATION
  Report Type: Spontaneous
  Country: US (occurrence: US)
  Receive Date: 20200724
  Receipt Date: 20200825
  Transmission Date: 20201103
  Serious: Yes (Life-Threatening)
  Sender: FDA-Public Use
  Company Number: US-PFIZER INC-2020282113

PATIENT
  Age: 68 Year
  Sex: Female
  Weight: 112.49 kg

DRUGS (1)
  1. CLEOCIN [Suspect]
     Active Substance: CLINDAMYCIN PHOSPHATE
     Indication: STAPHYLOCOCCAL INFECTION
     Dosage: 300 MG, DAILY
     Route: 048

REACTIONS (2)
  - Off label use [Unknown]
  - Staphylococcal infection [Unknown]
